FAERS Safety Report 5639239-6 (Version None)
Quarter: 2008Q1

REPORT INFORMATION
  Report Type: 
  Country: None (occurrence: None)
  Receive Date: 20080226
  Receipt Date: 20080212
  Transmission Date: 20080703
  Serious: Yes (Hospitalization)
  Sender: FDA-Public Use
  Company Number: TR-ELI_LILLY_AND_COMPANY-TR200802004506

PATIENT
  Sex: Female
  Weight: 120 kg

DRUGS (11)
  1. HUMULIN R [Suspect]
     Dosage: 4 IU, EACH MORNING
     Route: 058
     Dates: start: 20080101
  2. HUMULIN R [Suspect]
     Dosage: 6 IU, DAILY (1/D)
     Route: 058
     Dates: start: 20080101
  3. HUMULIN R [Suspect]
     Dosage: 4 IU, EACH EVENING
     Route: 058
     Dates: start: 20080101
  4. HUMULIN N [Suspect]
     Route: 058
     Dates: start: 20080101
  5. NOVOLOG MIX 70/30 [Concomitant]
     Dosage: 30 IU, EACH MORNING
     Dates: start: 20070101, end: 20080101
  6. NOVOLOG MIX 70/30 [Concomitant]
     Dosage: 20 IU, EACH EVENING
     Dates: start: 20070101, end: 20080101
  7. RAMIPRIL [Concomitant]
     Indication: HYPERTENSION
     Dosage: UNK, DAILY (1/D)
     Route: 048
     Dates: start: 20060101
  8. LIPITOR [Concomitant]
     Dosage: UNK, DAILY (1/D)
     Route: 048
     Dates: start: 20070101
  9. DILTIZEM [Concomitant]
     Indication: CARDIAC FAILURE CONGESTIVE
     Dosage: UNK, 3/D
     Route: 048
     Dates: start: 20080101
  10. LASIX [Concomitant]
     Indication: CARDIAC FAILURE CONGESTIVE
     Dosage: UNK, 2/D
     Route: 048
     Dates: start: 20080101
  11. CORASPIN [Concomitant]
     Dosage: UNK, 2/D
     Route: 048
     Dates: start: 20080101

REACTIONS (1)
  - ARTERIAL THERAPEUTIC PROCEDURE [None]
